FAERS Safety Report 6171893-5 (Version None)
Quarter: 2009Q2

REPORT INFORMATION
  Report Type: 
  Country: None (occurrence: None)
  Receive Date: 20090429
  Receipt Date: 20090420
  Transmission Date: 20091009
  Serious: Yes (Hospitalization)
  Sender: FDA-Public Use
  Company Number: JP-MERCK-0904USA00906

PATIENT
  Age: 31 Year
  Sex: Female
  Weight: 48 kg

DRUGS (3)
  1. FOSAMAX [Suspect]
     Indication: OSTEOPOROSIS PROPHYLAXIS
     Route: 048
     Dates: start: 20071015, end: 20090223
  2. BAKTAR [Suspect]
     Indication: INFECTION PROPHYLAXIS
     Route: 048
     Dates: start: 20040101, end: 20090223
  3. PREDONINE [Suspect]
     Indication: POLYMYALGIA RHEUMATICA
     Route: 048
     Dates: start: 20040101

REACTIONS (2)
  - ADVERSE EVENT [None]
  - LIVER FUNCTION TEST ABNORMAL [None]
